FAERS Safety Report 6782817-1 (Version None)
Quarter: 2010Q2

REPORT INFORMATION
  Report Type: 
  Country: None (occurrence: None)
  Receive Date: 20100616
  Receipt Date: 20100601
  Transmission Date: 20101027
  Serious: Yes (Other)
  Sender: FDA-Public Use
  Company Number: 2010SCPR001188

PATIENT
  Age: 65 Year
  Sex: Male

DRUGS (5)
  1. METHYLPREDNISOLONE [Suspect]
     Indication: ANAEMIA HAEMOLYTIC AUTOIMMUNE
  2. METHYLPREDNISOLONE [Suspect]
     Indication: CHRONIC LYMPHOCYTIC LEUKAEMIA
  3. ALEMTUZUMAB (ALEMTUZUMAB) UNKNOWN [Suspect]
     Indication: ANAEMIA HAEMOLYTIC AUTOIMMUNE
  4. ALEMTUZUMAB (ALEMTUZUMAB) UNKNOWN [Suspect]
     Indication: CHRONIC LYMPHOCYTIC LEUKAEMIA
  5. CYCLOSPORINE [Concomitant]

REACTIONS (5)
  - CEREBRAL ASPERGILLOSIS [None]
  - EYE INFECTION FUNGAL [None]
  - THROMBOCYTOPENIA [None]
  - VISUAL ACUITY REDUCED [None]
  - VITREOUS HAEMORRHAGE [None]
